FAERS Safety Report 12302382 (Version 3)
Quarter: 2016Q2

REPORT INFORMATION
  Report Type: Report from Study
  Country: HT (occurrence: HT)
  Receive Date: 20160425
  Receipt Date: 20160505
  Transmission Date: 20160815
  Serious: Yes (Death, Hospitalization)
  Sender: FDA-Public Use
  Company Number: HT-PFIZER INC-2016194537

PATIENT
  Age: 45 Year
  Sex: Female

DRUGS (4)
  1. LOPINAVIR/RITONAVIR [Suspect]
     Active Substance: LOPINAVIR\RITONAVIR
     Indication: HIV INFECTION
     Dosage: 500 MG, BID-TWICE A DAY
     Route: 048
     Dates: start: 20151105, end: 20160328
  2. TENOFOVIR/LAMIVUDINE [Concomitant]
     Active Substance: LAMIVUDINE\TENOFOVIR
     Indication: HIV INFECTION
     Dosage: QD - EVERY DAY
     Route: 048
     Dates: end: 20160327
  3. ISONIAZID. [Concomitant]
     Active Substance: ISONIAZID
     Indication: TUBERCULOSIS
     Dosage: QD - EVERY DAY
     Route: 048
     Dates: end: 20160327
  4. RIFABUTIN. [Suspect]
     Active Substance: RIFABUTIN
     Indication: PULMONARY TUBERCULOSIS
     Dosage: 150 MG, Q AM-EVERY MORNING
     Route: 048
     Dates: start: 20151030, end: 20160327

REACTIONS (5)
  - Encephalomalacia [None]
  - Sepsis [Fatal]
  - Respiratory distress [Fatal]
  - Cerebral calcification [Fatal]
  - Seizure [None]

NARRATIVE: CASE EVENT DATE: 20160104
